FAERS Safety Report 8075192-6 (Version None)
Quarter: 2012Q1

REPORT INFORMATION
  Report Type: 
  Country: None (occurrence: None)
  Receive Date: 20120127
  Receipt Date: 20120123
  Transmission Date: 20120608
  Serious: No
  Sender: FDA-Public Use
  Company Number: US-PFIZER INC-2012018635

PATIENT
  Sex: Female

DRUGS (3)
  1. ARTHROTEC [Suspect]
     Indication: ARTHRITIS
     Dosage: 1 DF, 2X/DAY
     Route: 048
  2. ARTHROTEC [Suspect]
     Indication: ARTHRALGIA
  3. CENTRUM ULTRA WOMEN'S [Suspect]

REACTIONS (1)
  - ARTHRALGIA [None]
